FAERS Safety Report 22059206 (Version 1)
Quarter: 2023Q1

REPORT INFORMATION
  Report Type: Spontaneous
  Country: CA (occurrence: CA)
  Receive Date: 20230303
  Receipt Date: 20230303
  Transmission Date: 20230417
  Serious: Yes (Hospitalization, Other)
  Sender: FDA-Public Use
  Company Number: CA-SAMSUNG BIOEPIS-SB-2023-05506

PATIENT
  Age: 47 Year
  Sex: Female
  Weight: 98 kg

DRUGS (6)
  1. INFLIXIMAB [Suspect]
     Active Substance: INFLIXIMAB
     Indication: Crohn^s disease
     Route: 065
  2. INFLIXIMAB [Suspect]
     Active Substance: INFLIXIMAB
     Route: 042
  3. INFLIXIMAB [Suspect]
     Active Substance: INFLIXIMAB
     Route: 042
  4. INFLIXIMAB [Suspect]
     Active Substance: INFLIXIMAB
     Route: 042
  5. METRONIDAZOLE [Concomitant]
     Active Substance: METRONIDAZOLE
     Indication: Prophylaxis
     Dosage: UNKNOWN
     Route: 065
  6. NEOMYCIN [Concomitant]
     Active Substance: NEOMYCIN
     Indication: Prophylaxis
     Dosage: UNKNOWN
     Route: 065

REACTIONS (8)
  - Weight decreased [Unknown]
  - Weight increased [Unknown]
  - Wound dehiscence [Unknown]
  - Intestinal resection [Unknown]
  - Stoma closure [Unknown]
  - Proctectomy [Unknown]
  - Off label use [Unknown]
  - Intentional product use issue [Unknown]
